FAERS Safety Report 4706814-2 (Version None)
Quarter: 2005Q3

REPORT INFORMATION
  Report Type: 
  Country: None (occurrence: None)
  Receive Date: 20050705
  Receipt Date: 20050621
  Transmission Date: 20060218
  Serious: Yes (Other)
  Sender: FDA-Public Use
  Company Number: 2005073561

PATIENT
  Age: 76 Year
  Sex: Female
  Weight: 69.8539 kg

DRUGS (8)
  1. NIFEDIPINE [Suspect]
     Indication: HYPERTENSION
     Dosage: 90 MG (90 MG, ONCE DAILY), ORAL
     Route: 048
     Dates: start: 20030101
  2. PROCARDIA XL [Suspect]
     Indication: HYPERTENSION
  3. CLONIDINE [Concomitant]
  4. IRBESARTAN [Concomitant]
  5. ATORVASTATIN CALCIUM [Concomitant]
  6. LORAZEPAM [Concomitant]
  7. ACETYLSALICYLIC ACID SRT [Concomitant]
  8. CLOPIDGREL SULFATE [Concomitant]

REACTIONS (5)
  - ANXIETY [None]
  - BLINDNESS UNILATERAL [None]
  - CATARACT [None]
  - CEREBROVASCULAR ACCIDENT [None]
  - PALPITATIONS [None]
